FAERS Safety Report 23670055 (Version 7)
Quarter: 2024Q3

REPORT INFORMATION
  Report Type: Spontaneous
  Country: PL (occurrence: PL)
  Receive Date: 20240325
  Receipt Date: 20240711
  Transmission Date: 20241017
  Serious: Yes (Hospitalization)
  Sender: SANDOZ
  Company Number: None

PATIENT
  Age: 74 Year
  Sex: Male
  Weight: 80 kg

DRUGS (194)
  1. CYCLOPHOSPHAMIDE [Suspect]
     Active Substance: CYCLOPHOSPHAMIDE
     Indication: Diffuse large B-cell lymphoma
     Dosage: 1496 MG, TIW;  ON 22/FEB/2024, MOST RECENT DOSE OF CYCLOPHOSPHAMIDE PRIOR TO AE, INFUSION
     Route: 042
     Dates: start: 20240222
  2. DOXORUBICIN [Suspect]
     Active Substance: DOXORUBICIN
     Indication: Diffuse large B-cell lymphoma
     Dosage: 100 MG, TIW; ON 22/FEB/2024, MOST RECENT DOSE OF DOXORUBICIN PRIOR TO AE
     Route: 042
     Dates: start: 20240222
  3. POLATUZUMAB VEDOTIN [Suspect]
     Active Substance: POLATUZUMAB VEDOTIN
     Indication: Diffuse large B-cell lymphoma
     Dosage: 149 MG, TIW; ON 22/FEB/2024, MOST RECENT DOSE OF POLATUZUMAB VEDOTIN PRIOR TO AE
     Route: 042
     Dates: start: 20240222
  4. PREDNISONE [Suspect]
     Active Substance: PREDNISONE
     Indication: Diffuse large B-cell lymphoma
     Dosage: 100 MG, TIW; ON 26/FEB/2024, RECENT DOSE OF PREDNISONE PRIOR TO AE
     Route: 048
     Dates: start: 20240222
  5. PREDNISONE [Suspect]
     Active Substance: PREDNISONE
     Dosage: 50 MG, QD
     Route: 065
     Dates: start: 20240219, end: 20240221
  6. RITUXIMAB [Suspect]
     Active Substance: RITUXIMAB
     Indication: Diffuse large B-cell lymphoma
     Dosage: 749.78 MG, TIW; ON 22/FEB/2024, MOST RECENT DOSE OF RITUXIMAB (748 MG) PRIOR TO AE
     Route: 042
     Dates: start: 20240222
  7. ASPIRIN [Concomitant]
     Active Substance: ASPIRIN
     Indication: Product used for unknown indication
     Dosage: 75 MG, QD
     Route: 065
     Dates: start: 20240221
  8. ASPIRIN [Concomitant]
     Active Substance: ASPIRIN
     Dosage: 75.000MG QD
     Route: 048
     Dates: start: 20240221
  9. ASPIRIN [Concomitant]
     Active Substance: ASPIRIN
     Dosage: 75.000MG QD
     Route: 065
     Dates: start: 20240221
  10. ASPIRIN [Concomitant]
     Active Substance: ASPIRIN
     Dosage: 75.000MG QD
     Route: 065
     Dates: start: 20240221
  11. ASPIRIN [Concomitant]
     Active Substance: ASPIRIN
     Dosage: 75.000MG QD
     Route: 065
     Dates: start: 20240221
  12. ASPIRIN [Concomitant]
     Active Substance: ASPIRIN
     Dosage: 75.000MG QD
     Route: 065
     Dates: start: 20240221
  13. ACYCLOVIR [Concomitant]
     Active Substance: ACYCLOVIR
     Indication: Product used for unknown indication
     Dosage: 400 MG
     Route: 065
     Dates: start: 20240222
  14. ACYCLOVIR [Concomitant]
     Active Substance: ACYCLOVIR
     Dosage: 400.000MG
     Route: 001
     Dates: start: 20240222
  15. ACYCLOVIR [Concomitant]
     Active Substance: ACYCLOVIR
     Dosage: 400.000MG
     Route: 065
     Dates: start: 20240222
  16. ACYCLOVIR [Concomitant]
     Active Substance: ACYCLOVIR
     Dosage: 400.000MG
     Route: 065
     Dates: start: 20240222
  17. ACYCLOVIR [Concomitant]
     Active Substance: ACYCLOVIR
     Dosage: 400.000MG
     Route: 065
     Dates: start: 20240222
  18. ACYCLOVIR [Concomitant]
     Active Substance: ACYCLOVIR
     Dosage: 400.000MG
     Route: 065
     Dates: start: 20240222
  19. ACYCLOVIR [Concomitant]
     Active Substance: ACYCLOVIR
     Dosage: 400.000MG
     Route: 065
     Dates: start: 20240222
  20. ACYCLOVIR [Concomitant]
     Active Substance: ACYCLOVIR
     Dosage: 400.000MG
     Route: 065
     Dates: start: 20240222
  21. ACIDUM CLAVULANICUM [Concomitant]
     Indication: Product used for unknown indication
     Dosage: 125 MG
     Route: 065
     Dates: start: 20240312, end: 20240317
  22. ACIDUM CLAVULANICUM [Concomitant]
     Dosage: 125.000MG
     Route: 048
     Dates: start: 20240312, end: 20240317
  23. ACIDUM CLAVULANICUM [Concomitant]
     Dosage: 125.000MG
     Route: 065
     Dates: start: 20240312, end: 20240317
  24. ACIDUM CLAVULANICUM [Concomitant]
     Dosage: 125.000MG
     Route: 065
     Dates: start: 20240312, end: 20240317
  25. ACIDUM CLAVULANICUM [Concomitant]
     Dosage: 125.000MG
     Route: 065
     Dates: start: 20240312, end: 20240317
  26. ACIDUM CLAVULANICUM [Concomitant]
     Dosage: 125.000MG
     Route: 065
     Dates: start: 20240312, end: 20240317
  27. ALLOPURINOL [Concomitant]
     Active Substance: ALLOPURINOL
     Indication: Product used for unknown indication
     Dosage: 300 MG, QD
     Route: 065
     Dates: start: 20240220
  28. ALLOPURINOL [Concomitant]
     Active Substance: ALLOPURINOL
     Dosage: 300.000MG QD
     Route: 048
     Dates: start: 20240220
  29. ALLOPURINOL [Concomitant]
     Active Substance: ALLOPURINOL
     Dosage: 300.000MG QD
     Route: 065
     Dates: start: 20240220
  30. ALLOPURINOL [Concomitant]
     Active Substance: ALLOPURINOL
     Dosage: 300.000MG QD
     Route: 065
     Dates: start: 20240220
  31. ALLOPURINOL [Concomitant]
     Active Substance: ALLOPURINOL
     Dosage: 300.000MG QD
     Route: 065
     Dates: start: 20240220
  32. ALLOPURINOL [Concomitant]
     Active Substance: ALLOPURINOL
     Dosage: 300.000MG QD
     Route: 065
     Dates: start: 20240220
  33. ALLOPURINOL [Concomitant]
     Active Substance: ALLOPURINOL
     Dosage: 300.000MG QD
     Route: 065
     Dates: start: 20240220
  34. ALLOPURINOL [Concomitant]
     Active Substance: ALLOPURINOL
     Dosage: 300.000MG QD
     Route: 065
     Dates: start: 20240220
  35. AMBROXOLI HYDROCHLORIDUM [Concomitant]
     Indication: Product used for unknown indication
     Dosage: 200 MG, QD
     Route: 065
     Dates: start: 20240312, end: 20240317
  36. AMBROXOLI HYDROCHLORIDUM [Concomitant]
     Dosage: 200.000MG QD
     Route: 048
     Dates: start: 20240312, end: 20240317
  37. AMBROXOLI HYDROCHLORIDUM [Concomitant]
     Dosage: 200.000MG QD
     Route: 065
     Dates: start: 20240312, end: 20240317
  38. AMBROXOLI HYDROCHLORIDUM [Concomitant]
     Dosage: 200.000MG QD
     Route: 065
     Dates: start: 20240312, end: 20240317
  39. AMBROXOLI HYDROCHLORIDUM [Concomitant]
     Dosage: 200.000MG QD
     Route: 065
     Dates: start: 20240312, end: 20240317
  40. AMBROXOLI HYDROCHLORIDUM [Concomitant]
     Dosage: 200.000MG QD
     Route: 065
     Dates: start: 20240312, end: 20240317
  41. AMOXICILLINUM [Concomitant]
     Indication: Product used for unknown indication
     Dosage: 875 MG
     Route: 065
     Dates: start: 20240312, end: 20240317
  42. AMOXICILLINUM [Concomitant]
     Dosage: 875.000MG
     Route: 048
     Dates: start: 20240312, end: 20240317
  43. AMOXICILLINUM [Concomitant]
     Dosage: 875.000MG
     Route: 065
     Dates: start: 20240312, end: 20240317
  44. AMOXICILLINUM [Concomitant]
     Dosage: 875.000MG
     Route: 065
     Dates: start: 20240312, end: 20240317
  45. AMOXICILLINUM [Concomitant]
     Dosage: 875.000MG
     Route: 065
     Dates: start: 20240312, end: 20240317
  46. AMOXICILLINUM [Concomitant]
     Dosage: 875.000MG
     Route: 065
     Dates: start: 20240312, end: 20240317
  47. CALCII CARBONAS [Concomitant]
     Indication: Product used for unknown indication
     Dosage: 400 MG, QD
     Route: 065
     Dates: start: 20240310
  48. CALCII CARBONAS [Concomitant]
     Dosage: 400.000MG QD
     Route: 048
     Dates: start: 20240310
  49. CALCII CARBONAS [Concomitant]
     Dosage: 400.000MG QD
     Route: 065
     Dates: start: 20240310
  50. CALCII CARBONAS [Concomitant]
     Dosage: 400.000MG QD
     Route: 065
     Dates: start: 20240310
  51. CALCII CARBONAS [Concomitant]
     Dosage: 400.000MG QD
     Route: 065
     Dates: start: 20240310
  52. CALCII CARBONAS [Concomitant]
     Dosage: 400.000MG QD
     Route: 065
     Dates: start: 20240310
  53. CEFTAZIDIME [Concomitant]
     Active Substance: CEFTAZIDIME
     Indication: Product used for unknown indication
     Dosage: UNK
     Route: 065
     Dates: start: 20240306, end: 20240313
  54. CEFTAZIDIME [Concomitant]
     Active Substance: CEFTAZIDIME
     Route: 065
     Dates: start: 20240306, end: 20240313
  55. CEFTAZIDIME [Concomitant]
     Active Substance: CEFTAZIDIME
     Route: 065
     Dates: start: 20240306, end: 20240313
  56. CLEMASTINE [Concomitant]
     Active Substance: CLEMASTINE
     Indication: Product used for unknown indication
     Dosage: 2 MG
     Route: 065
     Dates: start: 20240222, end: 20240222
  57. CLEMASTINE [Concomitant]
     Active Substance: CLEMASTINE
     Dosage: 2.000MG
     Route: 048
     Dates: start: 20240222, end: 20240222
  58. CLEMASTINE [Concomitant]
     Active Substance: CLEMASTINE
     Dosage: 2.000MG
     Route: 065
     Dates: start: 20240222, end: 20240222
  59. CLEMASTINE [Concomitant]
     Active Substance: CLEMASTINE
     Dosage: 2.000MG
     Route: 065
     Dates: start: 20240222, end: 20240222
  60. CLEMASTINE [Concomitant]
     Active Substance: CLEMASTINE
     Dosage: 2.000MG
     Route: 065
     Dates: start: 20240222, end: 20240222
  61. CLEMASTINE [Concomitant]
     Active Substance: CLEMASTINE
     Dosage: 2.000MG
     Route: 065
     Dates: start: 20240222, end: 20240222
  62. CODEINE HYDROCHLORIDE;SULFOGAIACOL [Concomitant]
     Indication: Product used for unknown indication
     Dosage: QD
     Route: 065
     Dates: start: 20240308, end: 20240310
  63. CODEINE HYDROCHLORIDE;SULFOGAIACOL [Concomitant]
     Dosage: QD
     Route: 065
     Dates: start: 20240308, end: 20240310
  64. CODEINE HYDROCHLORIDE;SULFOGAIACOL [Concomitant]
     Dosage: QD
     Route: 065
     Dates: start: 20240308, end: 20240310
  65. CODEINE HYDROCHLORIDE;SULFOGAIACOL [Concomitant]
     Dosage: QD
     Route: 065
     Dates: start: 20240308, end: 20240310
  66. CODEINE HYDROCHLORIDE;SULFOGAIACOL [Concomitant]
     Dosage: QD
     Route: 065
     Dates: start: 20240308, end: 20240310
  67. CYTARABINE [Concomitant]
     Active Substance: CYTARABINE
     Indication: Product used for unknown indication
     Dosage: 40 MG, QD
     Route: 065
     Dates: start: 20240223, end: 20240223
  68. CYTARABINE [Concomitant]
     Active Substance: CYTARABINE
     Dosage: 40.000MG QD
     Route: 008
     Dates: start: 20240223, end: 20240223
  69. CYTARABINE [Concomitant]
     Active Substance: CYTARABINE
     Dosage: 40.000MG QD
     Route: 065
     Dates: start: 20240223, end: 20240223
  70. CYTARABINE [Concomitant]
     Active Substance: CYTARABINE
     Dosage: 40.000MG QD
     Route: 065
     Dates: start: 20240223, end: 20240223
  71. CYTARABINE [Concomitant]
     Active Substance: CYTARABINE
     Dosage: 40.000MG QD
     Route: 065
     Dates: start: 20240223, end: 20240223
  72. CYTARABINE [Concomitant]
     Active Substance: CYTARABINE
     Dosage: 40.000MG QD
     Route: 065
     Dates: start: 20240223, end: 20240223
  73. DEXAMETHASONE [Concomitant]
     Active Substance: DEXAMETHASONE
     Indication: Product used for unknown indication
     Dosage: 4 MG, QD
     Route: 065
     Dates: start: 20240223, end: 20240223
  74. DEXAMETHASONE [Concomitant]
     Active Substance: DEXAMETHASONE
     Dosage: 4.000MG QD
     Route: 008
     Dates: start: 20240223, end: 20240223
  75. DEXAMETHASONE [Concomitant]
     Active Substance: DEXAMETHASONE
     Dosage: 4.000MG QD
     Route: 065
     Dates: start: 20240223, end: 20240223
  76. DEXAMETHASONE [Concomitant]
     Active Substance: DEXAMETHASONE
     Dosage: 4.000MG QD
     Route: 065
     Dates: start: 20240223, end: 20240223
  77. DEXAMETHASONE [Concomitant]
     Active Substance: DEXAMETHASONE
     Dosage: 4.000MG QD
     Route: 065
     Dates: start: 20240223, end: 20240223
  78. DEXAMETHASONE [Concomitant]
     Active Substance: DEXAMETHASONE
     Dosage: 4.000MG QD
     Route: 065
     Dates: start: 20240223, end: 20240223
  79. ENOXAPARIN [Concomitant]
     Active Substance: ENOXAPARIN
     Indication: Product used for unknown indication
     Dosage: 40 MG, QD
     Route: 065
     Dates: start: 20240221
  80. ENOXAPARIN [Concomitant]
     Active Substance: ENOXAPARIN
     Dosage: 40.000MG QD
     Route: 058
     Dates: start: 20240221
  81. ENOXAPARIN [Concomitant]
     Active Substance: ENOXAPARIN
     Dosage: 40.000MG QD
     Route: 065
     Dates: start: 20240221
  82. ENOXAPARIN [Concomitant]
     Active Substance: ENOXAPARIN
     Dosage: 40.000MG QD
     Route: 065
     Dates: start: 20240221
  83. ENOXAPARIN [Concomitant]
     Active Substance: ENOXAPARIN
     Dosage: 40.000MG QD
     Route: 065
     Dates: start: 20240221
  84. ENOXAPARIN [Concomitant]
     Active Substance: ENOXAPARIN
     Dosage: 40.000MG QD
     Route: 065
     Dates: start: 20240221
  85. FILGRASTIM [Concomitant]
     Active Substance: FILGRASTIM
     Indication: Product used for unknown indication
     Dosage: 48 DF, QD
     Route: 065
     Dates: start: 20240224, end: 20240224
  86. FILGRASTIM [Concomitant]
     Active Substance: FILGRASTIM
     Dosage: 48 IU, QD
     Route: 065
     Dates: start: 20240224, end: 20240224
  87. FILGRASTIM [Concomitant]
     Active Substance: FILGRASTIM
     Dosage: 48 IU, QD
     Route: 065
     Dates: start: 20240320
  88. FILGRASTIM [Concomitant]
     Active Substance: FILGRASTIM
     Dosage: 48.000IU QD
     Route: 065
     Dates: start: 20240224, end: 20240224
  89. FILGRASTIM [Concomitant]
     Active Substance: FILGRASTIM
     Dosage: 48.000IU QD
     Route: 065
     Dates: start: 20240224, end: 20240224
  90. FILGRASTIM [Concomitant]
     Active Substance: FILGRASTIM
     Dosage: 48.000IU QD
     Route: 065
     Dates: start: 20240320
  91. FILGRASTIM [Concomitant]
     Active Substance: FILGRASTIM
     Dosage: 48.000IU QD
     Route: 065
     Dates: start: 20240320
  92. FILGRASTIM [Concomitant]
     Active Substance: FILGRASTIM
     Dosage: UNK
     Route: 065
     Dates: start: 20240306, end: 20240307
  93. FILGRASTIM [Concomitant]
     Active Substance: FILGRASTIM
     Route: 065
     Dates: start: 20240306, end: 20240307
  94. FILGRASTIM [Concomitant]
     Active Substance: FILGRASTIM
     Route: 065
     Dates: start: 20240306, end: 20240307
  95. GLYCERIN [Concomitant]
     Active Substance: GLYCERIN
     Indication: Product used for unknown indication
     Dosage: 1 G
     Route: 065
     Dates: start: 20240310, end: 20240310
  96. GLYCERIN [Concomitant]
     Active Substance: GLYCERIN
     Dosage: 1.000G
     Route: 054
     Dates: start: 20240310, end: 20240310
  97. GLYCERIN [Concomitant]
     Active Substance: GLYCERIN
     Dosage: 1.000G
     Route: 065
     Dates: start: 20240310, end: 20240310
  98. GLYCERIN [Concomitant]
     Active Substance: GLYCERIN
     Dosage: 1.000G
     Route: 065
     Dates: start: 20240310, end: 20240310
  99. GRANULOCYTE COLONY-STIMULATING FACTOR NOS [Concomitant]
     Active Substance: GRANULOCYTE COLONY-STIMULATING FACTOR NOS
     Indication: Product used for unknown indication
     Dosage: UNK
     Route: 065
  100. LEVOTHYROXINE [Concomitant]
     Active Substance: LEVOTHYROXINE\LEVOTHYROXINE SODIUM
     Indication: Product used for unknown indication
     Dosage: 50 UG, QD
     Route: 065
     Dates: start: 202311
  101. LEVOTHYROXINE [Concomitant]
     Active Substance: LEVOTHYROXINE\LEVOTHYROXINE SODIUM
     Dosage: 50.000UG QD
     Route: 048
     Dates: start: 202311
  102. LEVOTHYROXINE [Concomitant]
     Active Substance: LEVOTHYROXINE\LEVOTHYROXINE SODIUM
     Indication: Hypothyroidism
     Dosage: 50.000UG QD
     Route: 065
     Dates: start: 202311
  103. LEVOTHYROXINE [Concomitant]
     Active Substance: LEVOTHYROXINE\LEVOTHYROXINE SODIUM
     Indication: Hypothyroidism
     Dosage: 50.000UG QD
     Route: 065
     Dates: start: 202311
  104. LEVOTHYROXINE [Concomitant]
     Active Substance: LEVOTHYROXINE\LEVOTHYROXINE SODIUM
     Dosage: 50.000UG QD
     Route: 065
     Dates: start: 202311
  105. LEVOTHYROXINE [Concomitant]
     Active Substance: LEVOTHYROXINE\LEVOTHYROXINE SODIUM
     Dosage: 50.000UG QD
     Route: 065
     Dates: start: 202311
  106. MESNA [Concomitant]
     Active Substance: MESNA
     Indication: Product used for unknown indication
     Dosage: 400 MG
     Route: 065
     Dates: start: 20240222, end: 20240222
  107. MESNA [Concomitant]
     Active Substance: MESNA
     Dosage: 400 MG
     Route: 065
     Dates: start: 20240318, end: 20240319
  108. MESNA [Concomitant]
     Active Substance: MESNA
     Dosage: 400.000MG
     Route: 042
     Dates: start: 20240222, end: 20240222
  109. MESNA [Concomitant]
     Active Substance: MESNA
     Dosage: 400.000MG
     Route: 042
     Dates: start: 20240318, end: 20240319
  110. MESNA [Concomitant]
     Active Substance: MESNA
     Dosage: 400.000MG
     Route: 065
     Dates: start: 20240222, end: 20240222
  111. MESNA [Concomitant]
     Active Substance: MESNA
     Dosage: 400.000MG
     Route: 065
     Dates: start: 20240222, end: 20240222
  112. MESNA [Concomitant]
     Active Substance: MESNA
     Dosage: 400.000MG
     Route: 065
     Dates: start: 20240222, end: 20240222
  113. MESNA [Concomitant]
     Active Substance: MESNA
     Dosage: 400.000MG
     Route: 065
     Dates: start: 20240222, end: 20240222
  114. MESNA [Concomitant]
     Active Substance: MESNA
     Dosage: 400.000MG
     Route: 065
     Dates: start: 20240318, end: 20240319
  115. MESNA [Concomitant]
     Active Substance: MESNA
     Dosage: 400.000MG
     Route: 065
     Dates: start: 20240318, end: 20240319
  116. MESNA [Concomitant]
     Active Substance: MESNA
     Dosage: 400.000MG
     Route: 065
     Dates: start: 20240318, end: 20240319
  117. MESNA [Concomitant]
     Active Substance: MESNA
     Dosage: 400.000MG
     Route: 065
     Dates: start: 20240318, end: 20240319
  118. METHOTREXATE [Concomitant]
     Active Substance: METHOTREXATE
     Indication: Product used for unknown indication
     Dosage: 15 MG, QD
     Route: 065
     Dates: start: 20240223, end: 20240223
  119. METHOTREXATE [Concomitant]
     Active Substance: METHOTREXATE
     Dosage: 15.000MG QD
     Route: 008
     Dates: start: 20240223, end: 20240223
  120. NYSTATIN [Concomitant]
     Active Substance: NYSTATIN
     Dosage: 1.000ML
     Route: 048
     Dates: start: 20240307, end: 20240312
  121. NYSTATIN [Concomitant]
     Active Substance: NYSTATIN
     Dosage: 1.000ML
     Route: 065
     Dates: start: 20240307, end: 20240312
  122. NYSTATIN [Concomitant]
     Active Substance: NYSTATIN
     Dosage: 1.000ML
     Route: 065
     Dates: start: 20240307, end: 20240312
  123. NYSTATIN [Concomitant]
     Active Substance: NYSTATIN
     Dosage: 1.000ML
     Route: 065
     Dates: start: 20240307, end: 20240312
  124. NYSTATIN [Concomitant]
     Active Substance: NYSTATIN
     Dosage: 1.000ML
     Route: 065
     Dates: start: 20240307, end: 20240312
  125. NYSTATIN [Concomitant]
     Active Substance: NYSTATIN
     Dosage: 1 ML
     Route: 065
     Dates: start: 20240307, end: 20240312
  126. NYSTATIN [Concomitant]
     Active Substance: NYSTATIN
     Indication: Product used for unknown indication
     Dosage: 1.000DF
     Route: 065
     Dates: start: 20240307, end: 20240312
  127. ONDANSETRON [Concomitant]
     Active Substance: ONDANSETRON
     Indication: Product used for unknown indication
     Dosage: 8 MG
     Route: 065
     Dates: start: 20240222, end: 20240223
  128. ONDANSETRON [Concomitant]
     Active Substance: ONDANSETRON
     Dosage: 8.000MG
     Route: 048
     Dates: start: 20240222, end: 20240223
  129. OSELTAMIVIR [Concomitant]
     Active Substance: OSELTAMIVIR
     Indication: Product used for unknown indication
     Dosage: 75 MG
     Route: 065
     Dates: start: 20240226, end: 20240301
  130. OSELTAMIVIR [Concomitant]
     Active Substance: OSELTAMIVIR
     Dosage: 75.000MG
     Route: 048
     Dates: start: 20240226, end: 20240301
  131. OSELTAMIVIR [Concomitant]
     Active Substance: OSELTAMIVIR
     Dosage: 75.000MG
     Route: 065
     Dates: start: 20240226, end: 20240301
  132. OSELTAMIVIR [Concomitant]
     Active Substance: OSELTAMIVIR
     Dosage: 75.000MG
     Route: 065
     Dates: start: 20240226, end: 20240301
  133. OSELTAMIVIR [Concomitant]
     Active Substance: OSELTAMIVIR
     Dosage: 75.000MG
     Route: 065
     Dates: start: 20240226, end: 20240301
  134. OSELTAMIVIR [Concomitant]
     Active Substance: OSELTAMIVIR
     Dosage: 75.000MG
     Route: 065
     Dates: start: 20240226, end: 20240301
  135. OSELTAMIVIR [Concomitant]
     Active Substance: OSELTAMIVIR
     Dosage: 75.000MG
     Route: 065
     Dates: start: 20240226, end: 20240301
  136. OSELTAMIVIR [Concomitant]
     Active Substance: OSELTAMIVIR
     Dosage: 75.000MG
     Route: 065
     Dates: start: 20240226, end: 20240301
  137. ACETAMINOPHEN [Concomitant]
     Active Substance: ACETAMINOPHEN
     Dosage: 1.000G QD
     Route: 048
     Dates: start: 20240222, end: 20240222
  138. ACETAMINOPHEN [Concomitant]
     Active Substance: ACETAMINOPHEN
     Dosage: 1.000G QD
     Route: 065
     Dates: start: 20240222, end: 20240222
  139. ACETAMINOPHEN [Concomitant]
     Active Substance: ACETAMINOPHEN
     Dosage: 1.000G QD
     Route: 065
     Dates: start: 20240222, end: 20240222
  140. ACETAMINOPHEN [Concomitant]
     Active Substance: ACETAMINOPHEN
     Dosage: 1.000G QD
     Route: 065
     Dates: start: 20240222, end: 20240222
  141. ACETAMINOPHEN [Concomitant]
     Active Substance: ACETAMINOPHEN
     Dosage: 1.000G QD
     Route: 065
     Dates: start: 20240222, end: 20240222
  142. ACETAMINOPHEN [Concomitant]
     Active Substance: ACETAMINOPHEN
     Indication: Product used for unknown indication
     Dosage: 1 G, QD
     Route: 065
     Dates: start: 20240222, end: 20240222
  143. PREDNISONE [Concomitant]
     Active Substance: PREDNISONE
     Indication: Product used for unknown indication
     Dosage: 50 MG, QD
     Route: 065
     Dates: start: 20240219, end: 20240221
  144. RASBURICASE [Concomitant]
     Active Substance: RASBURICASE
     Indication: Product used for unknown indication
     Dosage: 3 MG, QD
     Route: 065
     Dates: start: 20240219, end: 20240219
  145. RASBURICASE [Concomitant]
     Active Substance: RASBURICASE
     Dosage: 3.000MG QD
     Route: 042
     Dates: start: 20240219, end: 20240219
  146. RASBURICASE [Concomitant]
     Active Substance: RASBURICASE
     Dosage: 3.000MG QD
     Route: 065
     Dates: start: 20240219, end: 20240219
  147. RASBURICASE [Concomitant]
     Active Substance: RASBURICASE
     Dosage: 3.000MG QD
     Route: 065
     Dates: start: 20240219, end: 20240219
  148. RASBURICASE [Concomitant]
     Active Substance: RASBURICASE
     Dosage: 3.000MG QD
     Route: 065
     Dates: start: 20240219, end: 20240219
  149. RASBURICASE [Concomitant]
     Active Substance: RASBURICASE
     Dosage: 3.000MG QD
     Route: 065
     Dates: start: 20240219, end: 20240219
  150. SODIUM CHLORIDE [Concomitant]
     Active Substance: SODIUM CHLORIDE
     Dosage: 10.000ML QD
     Route: 042
     Dates: start: 20240319, end: 20240319
  151. SODIUM CHLORIDE [Concomitant]
     Active Substance: SODIUM CHLORIDE
     Dosage: 10.000ML QD
     Route: 065
     Dates: start: 20240319, end: 20240319
  152. SODIUM CHLORIDE [Concomitant]
     Active Substance: SODIUM CHLORIDE
     Dosage: 10.000ML QD
     Route: 065
     Dates: start: 20240319, end: 20240319
  153. SODIUM CHLORIDE [Concomitant]
     Active Substance: SODIUM CHLORIDE
     Dosage: 10.000ML
     Route: 042
     Dates: start: 20240307, end: 20240307
  154. SODIUM CHLORIDE [Concomitant]
     Active Substance: SODIUM CHLORIDE
     Dosage: 10.000ML
     Route: 042
     Dates: start: 20240327, end: 20240327
  155. SODIUM CHLORIDE [Concomitant]
     Active Substance: SODIUM CHLORIDE
     Dosage: 10.000ML
     Route: 065
     Dates: start: 20240307, end: 20240307
  156. SODIUM CHLORIDE [Concomitant]
     Active Substance: SODIUM CHLORIDE
     Dosage: 10.000ML
     Route: 065
     Dates: start: 20240307, end: 20240307
  157. SODIUM CHLORIDE [Concomitant]
     Active Substance: SODIUM CHLORIDE
     Dosage: 10.000ML
     Route: 065
     Dates: start: 20240327, end: 20240327
  158. SODIUM CHLORIDE [Concomitant]
     Active Substance: SODIUM CHLORIDE
     Dosage: 500.000ML
     Route: 042
     Dates: start: 20240219, end: 20240226
  159. SODIUM CHLORIDE [Concomitant]
     Active Substance: SODIUM CHLORIDE
     Dosage: 500.000ML
     Route: 065
     Dates: start: 20240219, end: 20240226
  160. SODIUM CHLORIDE [Concomitant]
     Active Substance: SODIUM CHLORIDE
     Dosage: 500.000ML
     Route: 065
     Dates: start: 20240219, end: 20240226
  161. SODIUM CHLORIDE [Concomitant]
     Active Substance: SODIUM CHLORIDE
     Dosage: 10 ML, QD
     Route: 065
     Dates: start: 20240319, end: 20240319
  162. SODIUM CHLORIDE [Concomitant]
     Active Substance: SODIUM CHLORIDE
     Dosage: 1.000G
     Route: 065
     Dates: start: 20240310, end: 20240310
  163. SODIUM CHLORIDE [Concomitant]
     Active Substance: SODIUM CHLORIDE
     Dosage: 10 ML
     Route: 065
     Dates: start: 20240307, end: 20240307
  164. SODIUM CHLORIDE [Concomitant]
     Active Substance: SODIUM CHLORIDE
     Dosage: 10 ML
     Route: 065
     Dates: start: 20240310, end: 20240310
  165. SODIUM CHLORIDE [Concomitant]
     Active Substance: SODIUM CHLORIDE
     Dosage: 10 ML
     Route: 065
     Dates: start: 20240327, end: 20240327
  166. SODIUM CHLORIDE [Concomitant]
     Active Substance: SODIUM CHLORIDE
     Dosage: 10.000ML
     Route: 065
     Dates: start: 20240327, end: 20240327
  167. SODIUM CHLORIDE [Concomitant]
     Active Substance: SODIUM CHLORIDE
     Indication: Product used for unknown indication
     Dosage: 500 DF
     Route: 065
     Dates: start: 20240219
  168. SODIUM CHLORIDE [Concomitant]
     Active Substance: SODIUM CHLORIDE
     Dosage: 500 ML
     Route: 065
     Dates: start: 20240219, end: 20240226
  169. SODIUM CHLORIDE [Concomitant]
     Active Substance: SODIUM CHLORIDE
     Dosage: 500.000ML
     Route: 065
     Dates: start: 20240219
  170. SODIUM CHLORIDE [Concomitant]
     Active Substance: SODIUM CHLORIDE
     Dosage: 500.000ML
     Route: 065
     Dates: start: 20240219
  171. TAMSULOSIN HYDROCHLORIDE [Concomitant]
     Active Substance: TAMSULOSIN HYDROCHLORIDE
     Indication: Product used for unknown indication
     Dosage: 0.4 MG, QD
     Route: 065
  172. TAMSULOSIN HYDROCHLORIDE [Concomitant]
     Active Substance: TAMSULOSIN HYDROCHLORIDE
     Dosage: 0.400MG QD
     Route: 048
  173. TAMSULOSIN HYDROCHLORIDE [Concomitant]
     Active Substance: TAMSULOSIN HYDROCHLORIDE
     Indication: Benign prostatic hyperplasia
     Dosage: 0.400MG QD
     Route: 065
  174. TAMSULOSIN HYDROCHLORIDE [Concomitant]
     Active Substance: TAMSULOSIN HYDROCHLORIDE
     Dosage: 0.400MG QD
     Route: 065
  175. TAMSULOSIN HYDROCHLORIDE [Concomitant]
     Active Substance: TAMSULOSIN HYDROCHLORIDE
     Dosage: 0.400MG QD
     Route: 065
  176. TAMSULOSIN HYDROCHLORIDE [Concomitant]
     Active Substance: TAMSULOSIN HYDROCHLORIDE
     Dosage: 0.400MG QD
     Route: 065
  177. TORSEMIDE [Concomitant]
     Active Substance: TORSEMIDE
     Dosage: 2.500MG QD
     Route: 065
     Dates: start: 20240307, end: 20240317
  178. TORSEMIDE [Concomitant]
     Active Substance: TORSEMIDE
     Indication: Product used for unknown indication
     Dosage: 5.000MG QD
     Route: 065
     Dates: start: 20240321, end: 20240327
  179. TORSEMIDE [Concomitant]
     Active Substance: TORSEMIDE
     Dosage: 2.5 MG, QD
     Route: 065
     Dates: start: 20240307, end: 20240317
  180. TORSEMIDE [Concomitant]
     Active Substance: TORSEMIDE
     Dosage: 2.500MG QD
     Route: 048
     Dates: start: 20240307, end: 20240317
  181. TORSEMIDE [Concomitant]
     Active Substance: TORSEMIDE
     Dosage: 2.500MG QD
     Route: 065
     Dates: start: 20240307, end: 20240317
  182. TORSEMIDE [Concomitant]
     Active Substance: TORSEMIDE
     Dosage: 2.500MG QD
     Route: 065
     Dates: start: 20240307, end: 20240317
  183. TORSEMIDE [Concomitant]
     Active Substance: TORSEMIDE
     Dosage: 2.500MG QD
     Route: 065
     Dates: start: 20240307, end: 20240317
  184. TORSEMIDE [Concomitant]
     Active Substance: TORSEMIDE
     Dosage: 2.500MG QD
     Route: 065
     Dates: start: 20240307, end: 20240317
  185. TORSEMIDE [Concomitant]
     Active Substance: TORSEMIDE
     Dosage: 2.500MG QD
     Route: 065
     Dates: start: 20240307, end: 20240317
  186. TORSEMIDE [Concomitant]
     Active Substance: TORSEMIDE
     Dosage: 2.500MG QD
     Route: 065
     Dates: start: 20240307, end: 20240317
  187. TORSEMIDE [Concomitant]
     Active Substance: TORSEMIDE
     Indication: Product used for unknown indication
     Dosage: 5 MG, QD
     Route: 065
     Dates: start: 20240321, end: 20240327
  188. TORSEMIDE [Concomitant]
     Active Substance: TORSEMIDE
     Dosage: 5.000MG QD
     Route: 048
     Dates: start: 20240321, end: 20240327
  189. TORSEMIDE [Concomitant]
     Active Substance: TORSEMIDE
     Dosage: 5.000MG QD
     Route: 065
     Dates: start: 20240321, end: 20240327
  190. TORSEMIDE [Concomitant]
     Active Substance: TORSEMIDE
     Dosage: 5.000MG QD
     Route: 065
     Dates: start: 20240321, end: 20240327
  191. TORSEMIDE [Concomitant]
     Active Substance: TORSEMIDE
     Dosage: 5.000MG QD
     Route: 065
     Dates: start: 20240321, end: 20240327
  192. TORSEMIDE [Concomitant]
     Active Substance: TORSEMIDE
     Dosage: 5.000MG QD
     Route: 065
     Dates: start: 20240321, end: 20240327
  193. TORSEMIDE [Concomitant]
     Active Substance: TORSEMIDE
     Dosage: 5.000MG QD
     Route: 065
     Dates: start: 20240321, end: 20240327
  194. TORSEMIDE [Concomitant]
     Active Substance: TORSEMIDE
     Dosage: 5.000MG QD
     Route: 065
     Dates: start: 20240321, end: 20240327

REACTIONS (2)
  - Febrile neutropenia [Recovered/Resolved]
  - Pneumonia [Recovered/Resolved]

NARRATIVE: CASE EVENT DATE: 20240305
